FAERS Safety Report 16051893 (Version 1)
Quarter: 2019Q1

REPORT INFORMATION
  Report Type: Report from Study
  Country: JP (occurrence: JP)
  Receive Date: 20190308
  Receipt Date: 20190308
  Transmission Date: 20190418
  Serious: Yes (Hospitalization)
  Sender: FDA-Public Use
  Company Number: JP-ELI_LILLY_AND_COMPANY-JP201902014364

PATIENT
  Sex: Male

DRUGS (1)
  1. TERIPARATIDE [Suspect]
     Active Substance: TERIPARATIDE
     Indication: PRODUCT USED FOR UNKNOWN INDICATION
     Dosage: UNK
     Route: 058
     Dates: start: 201801

REACTIONS (6)
  - Fall [Unknown]
  - Pneumonia aspiration [Unknown]
  - Emphysema [Unknown]
  - Cardiac failure [Unknown]
  - Haemorrhage [Unknown]
  - Fracture [Unknown]

NARRATIVE: CASE EVENT DATE: 20181225
